FAERS Safety Report 10024236 (Version 1)
Quarter: 2014Q1

REPORT INFORMATION
  Report Type: Spontaneous
  Country: US (occurrence: None)
  Receive Date: 20140304
  Receipt Date: 20140304
  Transmission Date: 20141002
  Serious: Yes (Other)
  Sender: FDA-Public Use
  Company Number: RB-55333-2013

PATIENT
  Sex: Male

DRUGS (3)
  1. SUBOXONE 8 MG [Suspect]
     Indication: DRUG DEPENDENCE
     Route: 064
     Dates: start: 201001, end: 2010
  2. METHADONE [Suspect]
     Indication: DRUG DEPENDENCE
     Dosage: (DOSING DETAILS UNKNOWN TRANSPLACENTAL)?
     Route: 064
     Dates: start: 2010, end: 20101102
  3. EFFEXOR [Suspect]
     Indication: DEPRESSION
     Dosage: (DOSING DETAILS UNKNOWN TRANSPLACENTAL)
     Route: 064
     Dates: start: 2010, end: 20101102

REACTIONS (2)
  - Foetal exposure during pregnancy [None]
  - Drug withdrawal syndrome neonatal [None]
